FAERS Safety Report 11557552 (Version 4)
Quarter: 2019Q1

REPORT INFORMATION
  Report Type: Spontaneous
  Country: CA (occurrence: CA)
  Receive Date: 20150926
  Receipt Date: 20190205
  Transmission Date: 20190417
  Serious: Yes (Hospitalization, Other)
  Sender: FDA-Public Use
  Company Number: CA-009507513-1509CAN012833

PATIENT
  Age: 63 Year
  Sex: Female

DRUGS (4)
  1. INFLUENZA VIRUS VACCINE INACTIVATED (UNSPECIFIED) [Concomitant]
     Active Substance: INFLUENZA VIRUS VACCINE
     Dosage: UNK
     Route: 065
     Dates: start: 201610
  2. SINGULAIR [Suspect]
     Active Substance: MONTELUKAST SODIUM
     Indication: ASTHMA
     Dosage: 10 MG PO QHS/DAILY
     Route: 048
     Dates: start: 1999, end: 2015
  3. INFLUENZA VIRUS VACCINE INACTIVATED (UNSPECIFIED) [Concomitant]
     Active Substance: INFLUENZA VIRUS VACCINE
     Dosage: UNK
     Route: 065
     Dates: start: 20181120
  4. SINGULAIR [Suspect]
     Active Substance: MONTELUKAST SODIUM
     Dosage: 10 MG PO QHS/DAILY
     Route: 048
     Dates: start: 2015

REACTIONS (17)
  - Cardiac failure [Recovering/Resolving]
  - Peripheral embolism [Recovering/Resolving]
  - Seizure [Recovering/Resolving]
  - Nasopharyngitis [Not Recovered/Not Resolved]
  - Migraine [Recovered/Resolved]
  - Adverse event [Recovering/Resolving]
  - Abdominal discomfort [Recovered/Resolved]
  - Feeling abnormal [Unknown]
  - Road traffic accident [Recovering/Resolving]
  - Immunodeficiency [Unknown]
  - Back pain [Recovering/Resolving]
  - Oropharyngeal pain [Not Recovered/Not Resolved]
  - Cough [Not Recovered/Not Resolved]
  - Amnesia [Recovering/Resolving]
  - Fatigue [Not Recovered/Not Resolved]
  - Throat irritation [Not Recovered/Not Resolved]
  - Diarrhoea [Not Recovered/Not Resolved]

NARRATIVE: CASE EVENT DATE: 2015
